FAERS Safety Report 8956560 (Version 1)
Quarter: 2012Q4

REPORT INFORMATION
  Report Type: Report from Study
  Country: US (occurrence: US)
  Receive Date: 20121210
  Receipt Date: 20121210
  Transmission Date: 20130627
  Serious: Yes (Death, Hospitalization)
  Sender: FDA-Public Use
  Company Number: US-ASTRAZENECA-2012SE91368

PATIENT
  Age: 838 Month
  Sex: Female
  Weight: 65.4 kg

DRUGS (2)
  1. ZD6474 [Suspect]
     Indication: OVARIAN EPITHELIAL CANCER
     Route: 048
     Dates: start: 20110119, end: 20110328
  2. DOCETAXEL [Suspect]
     Indication: OVARIAN EPITHELIAL CANCER
     Route: 042
     Dates: start: 20110119, end: 20110309

REACTIONS (1)
  - Myelodysplastic syndrome [Fatal]
